FAERS Safety Report 12462134 (Version 2)
Quarter: 2016Q3

REPORT INFORMATION
  Report Type: Report from Study
  Country: TW (occurrence: TW)
  Receive Date: 20160613
  Receipt Date: 20160702
  Transmission Date: 20161109
  Serious: Yes (Hospitalization)
  Sender: FDA-Public Use
  Company Number: TW-ABBVIE-16K-153-1646589-00

PATIENT
  Age: 66 Year
  Sex: Male

DRUGS (1)
  1. HUMIRA [Suspect]
     Active Substance: ADALIMUMAB
     Indication: PSORIATIC ARTHROPATHY
     Route: 058
     Dates: start: 20100115, end: 20160523

REACTIONS (7)
  - Hepatic steatosis [Recovering/Resolving]
  - Pyrexia [Unknown]
  - Nausea [Unknown]
  - Abdominal distension [Recovering/Resolving]
  - Oliguria [Recovering/Resolving]
  - Constipation [Unknown]
  - Hepatitis acute [Recovering/Resolving]

NARRATIVE: CASE EVENT DATE: 20160525
